FAERS Safety Report 24604267 (Version 3)
Quarter: 2025Q1

REPORT INFORMATION
  Report Type: Spontaneous
  Country: US (occurrence: US)
  Receive Date: 20241111
  Receipt Date: 20250102
  Transmission Date: 20250408
  Serious: No
  Sender: PFIZER
  Company Number: US-PFIZER INC-202400269636

PATIENT
  Age: 39 Year
  Sex: Female

DRUGS (3)
  1. TUKYSA [Suspect]
     Active Substance: TUCATINIB
     Dosage: TWO TABLETS TWICE A DAY
     Dates: start: 20240814
  2. CAPECITABINE [Concomitant]
     Active Substance: CAPECITABINE
  3. ANASTROZOLE [Concomitant]
     Active Substance: ANASTROZOLE

REACTIONS (3)
  - Nausea [Unknown]
  - Off label use [Unknown]
  - Product use issue [Unknown]

NARRATIVE: CASE EVENT DATE: 20240814
